FAERS Safety Report 9819995 (Version 1)
Quarter: 2013Q4

REPORT INFORMATION
  Report Type: Spontaneous
  Country: US (occurrence: None)
  Receive Date: 20131223
  Receipt Date: 20131223
  Transmission Date: 20140711
  Serious: Yes (Other)
  Sender: FDA-Public Use
  Company Number: 218245

PATIENT
  Sex: Female

DRUGS (2)
  1. PICATO [Suspect]
     Indication: ACTINIC KERATOSIS
     Route: 061
     Dates: start: 20120626, end: 20120628
  2. ALTABAX (RETAPAMULIN) [Concomitant]

REACTIONS (3)
  - Erythema [None]
  - Erythema [None]
  - Drug administered at inappropriate site [None]
